FAERS Safety Report 12175227 (Version 4)
Quarter: 2016Q2

REPORT INFORMATION
  Report Type: Report from Study
  Country: US (occurrence: US)
  Receive Date: 20160314
  Receipt Date: 20160530
  Transmission Date: 20160815
  Serious: Yes (Other)
  Sender: FDA-Public Use
  Company Number: US-SA-2016SA049624

PATIENT
  Age: 78 Year
  Sex: Female

DRUGS (11)
  1. ALIROCUMAB PREFILLED PEN [Concomitant]
     Active Substance: ALIROCUMAB
     Dates: start: 20160105
  2. PRALUENT [Suspect]
     Active Substance: ALIROCUMAB
     Indication: TYPE V HYPERLIPIDAEMIA
     Route: 058
     Dates: start: 20160105
  3. AMLODIPINE [Concomitant]
     Active Substance: AMLODIPINE BESYLATE
  4. VALSARTAN. [Concomitant]
     Active Substance: VALSARTAN
  5. DIAZEPAM. [Concomitant]
     Active Substance: DIAZEPAM
  6. CLOPIDOGREL [Concomitant]
     Active Substance: CLOPIDOGREL BISULFATE
  7. SIMVASTATIN. [Concomitant]
     Active Substance: SIMVASTATIN
  8. TYLENOL [Concomitant]
     Active Substance: ACETAMINOPHEN
  9. OMEPRAZOLE. [Concomitant]
     Active Substance: OMEPRAZOLE
  10. HYDROCHLOROT [Concomitant]
     Active Substance: HYDROCHLOROTHIAZIDE
  11. ZETIA [Concomitant]
     Active Substance: EZETIMIBE

REACTIONS (16)
  - Delirium [Not Recovered/Not Resolved]
  - Wrong technique in product usage process [Unknown]
  - Malaise [Not Recovered/Not Resolved]
  - Swelling [Recovering/Resolving]
  - Drug dose omission [Unknown]
  - Pneumonia [Not Recovered/Not Resolved]
  - Feeling abnormal [Not Recovered/Not Resolved]
  - Hypotension [Not Recovered/Not Resolved]
  - Rash [Not Recovered/Not Resolved]
  - Injury associated with device [Unknown]
  - Nasopharyngitis [Not Recovered/Not Resolved]
  - Drug hypersensitivity [Unknown]
  - Drug ineffective [Unknown]
  - Vascular occlusion [Unknown]
  - Deafness [Not Recovered/Not Resolved]
  - Influenza [Not Recovered/Not Resolved]

NARRATIVE: CASE EVENT DATE: 20160308
